FAERS Safety Report 20010738 (Version 2)
Quarter: 2022Q1

REPORT INFORMATION
  Report Type: Spontaneous
  Country: CA (occurrence: CA)
  Receive Date: 20211029
  Receipt Date: 20220224
  Transmission Date: 20220424
  Serious: Yes (Other)
  Sender: FDA-Public Use
  Company Number: CA-AUROBINDO-AUR-APL-2021-044909

PATIENT
  Age: 29 Year
  Sex: Female
  Weight: 52 kg

DRUGS (6)
  1. SIMVASTATIN [Suspect]
     Active Substance: SIMVASTATIN
     Indication: Product used for unknown indication
     Dosage: 15 MILLIGRAM, TWO TIMES A DAY
     Route: 065
  2. BENADRYL [Suspect]
     Active Substance: DIPHENHYDRAMINE HYDROCHLORIDE
     Indication: Product used for unknown indication
     Dosage: 50 MILLIGRAM
     Route: 048
  3. HALDOL [Suspect]
     Active Substance: HALOPERIDOL
     Indication: Product used for unknown indication
     Dosage: UNK
     Route: 065
  4. METHYLPREDNISOLONE SODIUM SUCCINATE [Suspect]
     Active Substance: METHYLPREDNISOLONE SODIUM SUCCINATE
     Indication: Product used for unknown indication
     Dosage: 100 MILLIGRAM
     Route: 042
  5. RITUXIMAB [Suspect]
     Active Substance: RITUXIMAB
     Indication: Product used for unknown indication
     Dosage: 1000 MILLIGRAM
     Route: 042
  6. TYLENOL [Suspect]
     Active Substance: ACETAMINOPHEN
     Indication: Product used for unknown indication
     Dosage: 650 MILLIGRAM
     Route: 048

REACTIONS (5)
  - Spinal fracture [Unknown]
  - Back pain [Unknown]
  - Drug hypersensitivity [Unknown]
  - Hypotension [Unknown]
  - Osteoporosis [Unknown]
